FAERS Safety Report 8397485-5 (Version None)
Quarter: 2012Q2

REPORT INFORMATION
  Report Type: 
  Country: None (occurrence: None)
  Receive Date: 20120531
  Receipt Date: 20120522
  Transmission Date: 20120825
  Serious: Yes (Other)
  Sender: FDA-Public Use
  Company Number: CA-JNJFOC-20120517737

PATIENT
  Sex: Male
  Weight: 91 kg

DRUGS (14)
  1. REMICADE [Suspect]
     Indication: CROHN'S DISEASE
     Route: 042
     Dates: start: 20060101
  2. PURINETHOL [Concomitant]
     Route: 065
  3. FOLIC ACID [Concomitant]
     Route: 065
  4. OMEPRAZOLE (PRISOLEC) [Concomitant]
     Route: 065
  5. LUTEIN [Concomitant]
     Route: 065
  6. ATACAND [Concomitant]
     Route: 065
  7. SENNA LAXATIVE [Concomitant]
     Route: 065
  8. MULTI-VITAMINS [Concomitant]
     Route: 065
  9. VITAMIN D W/ CALCIUM [Concomitant]
     Route: 065
  10. ATACAND [Concomitant]
     Route: 065
  11. DOCUSATE [Concomitant]
     Route: 065
  12. PREDNISONE TAB [Concomitant]
     Route: 065
  13. SULFASALAZINE [Concomitant]
     Route: 065
  14. SEROQUEL [Concomitant]
     Route: 065

REACTIONS (1)
  - LABYRINTHITIS [None]
